FAERS Safety Report 6994190 (Version 2)
Quarter: 2020Q3

REPORT INFORMATION
  Report Type: Report from Study
  Country: FR (occurrence: FR)
  Receive Date: 20090514
  Receipt Date: 20090605
  Transmission Date: 20201104
  Serious: Yes (Hospitalization)
  Sender: FDA-Public Use
  Company Number: FR-ROCHE-631642

PATIENT
  Age: 56 Year
  Sex: Female
  Weight: 62 kg

DRUGS (13)
  1. AZATHIOPRINE. [Suspect]
     Active Substance: AZATHIOPRINE
     Indication: RHEUMATOID ARTHRITIS
     Route: 048
     Dates: start: 20090327, end: 20090429
  2. METHOTREXATE. [Concomitant]
     Active Substance: METHOTREXATE
     Dosage: STOPPED DUE TO INEFFICACY
     Dates: start: 2005, end: 2006
  3. PLAQUENIL [Suspect]
     Active Substance: HYDROXYCHLOROQUINE SULFATE
     Indication: RHEUMATOID ARTHRITIS
     Route: 048
     Dates: start: 20060125
  4. ARAVA [Concomitant]
     Active Substance: LEFLUNOMIDE
     Dates: start: 200604, end: 200903
  5. ORENCIA [Concomitant]
     Active Substance: ABATACEPT
     Dosage: 4 INFUSIONS
     Dates: start: 200811, end: 200812
  6. REMICADE [Concomitant]
     Active Substance: INFLIXIMAB
     Dosage: 15 INFUSIONS, FROM MAR 2007 TO JAN 2008 AND FEB 2009
     Dates: start: 200703, end: 200901
  7. HUMIRA [Concomitant]
     Active Substance: ADALIMUMAB
     Dosage: STOPPED DUE TO INEFFICACY
     Dates: start: 200803, end: 200804
  8. MABTHERA [Concomitant]
     Active Substance: RITUXIMAB
     Dosage: 4 X 1 GRAM, RE?TREATMENT INEFFICACIOUS
     Dates: start: 200804, end: 200810
  9. IBANDRONIC ACID. [Suspect]
     Active Substance: IBANDRONIC ACID
     Indication: OSTEOPOROSIS
     Route: 048
     Dates: start: 20070831
  10. MABTHERA [Concomitant]
     Active Substance: RITUXIMAB
     Dosage: TREATMENT EFFICACIOUS
  11. TOCILIZUMAB. [Suspect]
     Active Substance: TOCILIZUMAB
     Indication: RHEUMATOID ARTHRITIS
     Dosage: FORM: INFUSION
     Route: 042
     Dates: start: 20090402
  12. CORTANCYL [Suspect]
     Active Substance: PREDNISONE
     Indication: RHEUMATOID ARTHRITIS
     Route: 048
     Dates: start: 20050827
  13. REMICADE [Concomitant]
     Active Substance: INFLIXIMAB
     Dates: end: 200902

REACTIONS (1)
  - Pancytopenia [Recovered/Resolved]

NARRATIVE: CASE EVENT DATE: 20090429
